FAERS Safety Report 6673565-7 (Version None)
Quarter: 2010Q2

REPORT INFORMATION
  Report Type: 
  Country: None (occurrence: None)
  Receive Date: 20100408
  Receipt Date: 20100329
  Transmission Date: 20101027
  Serious: Yes (Other)
  Sender: FDA-Public Use
  Company Number: BR-PFIZER INC-2009228731

PATIENT
  Age: 25 Year
  Sex: Female
  Weight: 65 kg

DRUGS (1)
  1. DEPO-PROVERA [Suspect]
     Indication: CONTRACEPTION
     Dosage: 150 MG, EVERY 3 MONTHS
     Route: 030
     Dates: start: 20080715, end: 20090401

REACTIONS (12)
  - ABDOMINAL PAIN [None]
  - ABORTION SPONTANEOUS [None]
  - AMENORRHOEA [None]
  - BLOOD PRESSURE FLUCTUATION [None]
  - BONE PAIN [None]
  - BREAST DISCHARGE [None]
  - DRUG INEFFECTIVE [None]
  - HEADACHE [None]
  - METRORRHAGIA [None]
  - MUSCULOSKELETAL PAIN [None]
  - NAUSEA [None]
  - UNINTENDED PREGNANCY [None]
